FAERS Safety Report 17226749 (Version 1)
Quarter: 2020Q1

REPORT INFORMATION
  Report Type: Report from Study
  Country: None (occurrence: US)
  Receive Date: 20200102
  Receipt Date: 20200102
  Transmission Date: 20200409
  Serious: Yes (Hospitalization, Other)
  Sender: FDA-Public Use
  Company Number: US-ABBVIE-20K-163-3216788-00

PATIENT
  Sex: Female

DRUGS (1)
  1. VENCLEXTA [Suspect]
     Active Substance: VENETOCLAX
     Indication: CHRONIC LYMPHOCYTIC LEUKAEMIA
     Route: 048

REACTIONS (7)
  - Splenomegaly [Unknown]
  - Weight increased [Unknown]
  - Acute myeloid leukaemia [Unknown]
  - Pyrexia [Unknown]
  - Atrial fibrillation [Recovered/Resolved]
  - Fluid retention [Unknown]
  - Abdominal pain [Unknown]
